FAERS Safety Report 5087159-0 (Version None)
Quarter: 2006Q3

REPORT INFORMATION
  Report Type: 
  Country: None (occurrence: None)
  Receive Date: 20060821
  Receipt Date: 20060807
  Transmission Date: 20061208
  Serious: Yes (Hospitalization, Other)
  Sender: FDA-Public Use
  Company Number: 2006096727

PATIENT
  Age: 72 Year
  Sex: Male

DRUGS (2)
  1. SUTENT [Suspect]
     Indication: RENAL CELL CARCINOMA STAGE UNSPECIFIED
     Dosage: 37.5 MG (37.5 MG,1 IN 1 D), ORAL
     Route: 048
     Dates: start: 20060426
  2. OMEPRAZOLE [Concomitant]

REACTIONS (8)
  - ANOREXIA [None]
  - CONDITION AGGRAVATED [None]
  - DYSPHAGIA [None]
  - GUILLAIN-BARRE SYNDROME [None]
  - HYPOKINESIA [None]
  - LUNG NEOPLASM [None]
  - PETIT MAL EPILEPSY [None]
  - WEIGHT FLUCTUATION [None]
